FAERS Safety Report 4369826-7 (Version None)
Quarter: 2004Q2

REPORT INFORMATION
  Report Type: 
  Country: None (occurrence: None)
  Receive Date: 20040603
  Receipt Date: 20040520
  Transmission Date: 20050107
  Serious: Yes (Other)
  Sender: FDA-Public Use
  Company Number: JP-MERCK-0405USA01670

PATIENT
  Age: 77 Year
  Sex: Female

DRUGS (14)
  1. AMLODIPINE BESYLATE [Concomitant]
     Indication: HYPERTENSION
     Route: 065
  2. ASPIRIN ALUMINUM [Concomitant]
     Indication: THROMBOSIS PROPHYLAXIS
     Route: 065
     Dates: start: 20040329
  3. ATORVASTATIN CALCIUM [Concomitant]
     Route: 065
     Dates: start: 20040329
  4. BROTIZOLAM [Concomitant]
     Route: 065
     Dates: start: 20040329
  5. CARVEDILOL [Concomitant]
     Indication: HYPERTENSION
     Route: 065
  6. DOXAZOSIN MESYLATE [Concomitant]
     Route: 065
  7. FUROSEMIDE [Concomitant]
     Route: 065
     Dates: start: 20040329
  8. HYDRALAZINE HYDROCHLORIDE [Concomitant]
     Route: 065
  9. COZAAR [Suspect]
     Indication: HYPERTENSION
     Route: 048
     Dates: start: 20040507, end: 20040518
  10. NICORANDIL [Concomitant]
     Route: 065
     Dates: start: 20040329
  11. NIFEDIPINE [Concomitant]
     Route: 065
  12. REBAMIPIDE [Concomitant]
     Route: 065
     Dates: start: 20040329
  13. SENNOSIDES [Concomitant]
     Route: 065
     Dates: start: 20040329
  14. VOGLIBOSE [Concomitant]
     Route: 065

REACTIONS (2)
  - GRANULOCYTOPENIA [None]
  - MEDICATION ERROR [None]
